FAERS Safety Report 13329867 (Version 1)
Quarter: 2017Q1

REPORT INFORMATION
  Report Type: Report from Study
  Country: GR (occurrence: GR)
  Receive Date: 20170313
  Receipt Date: 20170313
  Transmission Date: 20170428
  Serious: Yes (Death, Hospitalization)
  Sender: FDA-Public Use
  Company Number: GR-ELI_LILLY_AND_COMPANY-GR201703001441

PATIENT
  Age: 78 Year
  Sex: Male

DRUGS (6)
  1. SINTROM [Concomitant]
     Active Substance: ACENOCOUMAROL
     Indication: CARDIAC DISORDER
  2. LASIX [Concomitant]
     Active Substance: FUROSEMIDE
     Indication: CARDIAC DISORDER
  3. VITAMIN D3 [Concomitant]
     Active Substance: CHOLECALCIFEROL
     Indication: OSTEOPOROSIS
  4. CALCIUM [Concomitant]
     Active Substance: CALCIUM
     Indication: OSTEOPOROSIS
  5. FORSTEO [Suspect]
     Active Substance: TERIPARATIDE
     Indication: OSTEOPOROSIS
     Dosage: 20 UG, QD
     Route: 058
     Dates: start: 20151013
  6. PENRAZOLE [Concomitant]
     Indication: GASTRIC DISORDER

REACTIONS (3)
  - Myocardial infarction [Fatal]
  - Anaemia [Unknown]
  - Viral infection [Unknown]

NARRATIVE: CASE EVENT DATE: 20170109
